FAERS Safety Report 15333859 (Version 3)
Quarter: 2019Q2

REPORT INFORMATION
  Report Type: Report from Study
  Country: AU (occurrence: AU)
  Receive Date: 20180830
  Receipt Date: 20190402
  Transmission Date: 20190711
  Serious: Yes (Hospitalization)
  Sender: FDA-Public Use
  Company Number: AU-EMD SERONO-E2B_90057104

PATIENT
  Age: 80 Year
  Sex: Female
  Weight: 61 kg

DRUGS (1)
  1. AVELUMAB [Suspect]
     Active Substance: AVELUMAB
     Indication: TRANSITIONAL CELL CARCINOMA
     Dosage: 714 MG, CYCLIC (2 WEEKLY)
     Route: 042
     Dates: start: 20180424, end: 20180522

REACTIONS (1)
  - Miller Fisher syndrome [Unknown]

NARRATIVE: CASE EVENT DATE: 20180710
